FAERS Safety Report 15372887 (Version 2)
Quarter: 2018Q4

REPORT INFORMATION
  Report Type: Spontaneous
  Country: US (occurrence: US)
  Receive Date: 20180912
  Receipt Date: 20181001
  Transmission Date: 20190204
  Serious: Yes (Hospitalization, Other)
  Sender: FDA-Public Use
  Company Number: US-BEH-2018094663

PATIENT
  Sex: Male
  Weight: 125 kg

DRUGS (1)
  1. HIZENTRA [Suspect]
     Active Substance: HUMAN IMMUNOGLOBULIN G
     Indication: DERMATOMYOSITIS
     Dosage: 20 G, BIW
     Route: 058
     Dates: start: 201512

REACTIONS (5)
  - Deep vein thrombosis [Unknown]
  - Pneumonia [Unknown]
  - Back pain [Unknown]
  - Haemoptysis [Unknown]
  - Pulmonary embolism [Unknown]

NARRATIVE: CASE EVENT DATE: 20180827
